FAERS Safety Report 10246392 (Version 1)
Quarter: 2014Q2

REPORT INFORMATION
  Report Type: Spontaneous
  Country: US (occurrence: None)
  Receive Date: 20140617
  Receipt Date: 20140617
  Transmission Date: 20141212
  Serious: Yes (Life-Threatening, Hospitalization, Disabling, Other)
  Sender: FDA-Public Use
  Company Number: None

PATIENT
  Age: 53 Year
  Sex: Male
  Weight: 106.6 kg

DRUGS (1)
  1. TRICOR [Suspect]
     Indication: BLOOD TRIGLYCERIDES INCREASED
     Route: 048
     Dates: start: 20121109, end: 20131109

REACTIONS (14)
  - Palpitations [None]
  - Hyperhidrosis [None]
  - Fatigue [None]
  - Feeling abnormal [None]
  - Pollakiuria [None]
  - Dehydration [None]
  - Renal failure acute [None]
  - Diabetes mellitus [None]
  - Blood glucose fluctuation [None]
  - Neuropathy peripheral [None]
  - Renal disorder [None]
  - Neoplasm malignant [None]
  - Kidney infection [None]
  - Laboratory test abnormal [None]
